FAERS Safety Report 20000886 (Version 1)
Quarter: 2021Q4

REPORT INFORMATION
  Report Type: Spontaneous
  Country: US (occurrence: US)
  Receive Date: 20211027
  Receipt Date: 20211027
  Transmission Date: 20220303
  Serious: No
  Sender: FDA-Public Use
  Company Number: None

PATIENT
  Age: 57 Year
  Sex: Male

DRUGS (1)
  1. IBUPROFEN [Suspect]
     Active Substance: IBUPROFEN
     Route: 048
     Dates: start: 20210127, end: 20210810

REACTIONS (6)
  - Nausea [None]
  - Fatigue [None]
  - Gastritis erosive [None]
  - Gastrointestinal haemorrhage [None]
  - Tachycardia [None]
  - Haematemesis [None]

NARRATIVE: CASE EVENT DATE: 20210810
